FAERS Safety Report 6262277-X (Version None)
Quarter: 2009Q3

REPORT INFORMATION
  Report Type: 
  Country: None (occurrence: None)
  Receive Date: 20090709
  Receipt Date: 20090707
  Transmission Date: 20100115
  Serious: No
  Sender: FDA-Public Use
  Company Number: US-B.I. PHARMACEUTICALS,INC./RIDGEFIELD-2009-BP-08065BP

PATIENT
  Age: 30 Year
  Sex: Male

DRUGS (2)
  1. FLOMAX [Suspect]
     Indication: BENIGN PROSTATIC HYPERPLASIA
     Dosage: 0.4 MG
     Route: 048
     Dates: start: 20090401, end: 20090401
  2. ACIPHEX [Concomitant]
     Indication: GASTRIC PH DECREASED

REACTIONS (4)
  - EJACULATION DISORDER [None]
  - EJACULATION FAILURE [None]
  - ERECTILE DYSFUNCTION [None]
  - TESTICULAR CYST [None]
